FAERS Safety Report 6734070-2 (Version None)
Quarter: 2010Q2

REPORT INFORMATION
  Report Type: 
  Country: None (occurrence: None)
  Receive Date: 20100518
  Receipt Date: 20100505
  Transmission Date: 20101027
  Serious: Yes (Hospitalization)
  Sender: FDA-Public Use
  Company Number: 7004052

PATIENT
  Age: 28 Year
  Sex: Female
  Weight: 182 kg

DRUGS (3)
  1. REBIF [Suspect]
     Indication: MULTIPLE SCLEROSIS
     Dosage: 44 MCG, 3 IN 1 WK, SUBCUTANEOUS
     Route: 058
     Dates: start: 20100305
  2. INSULIN (INSULIN) [Concomitant]
  3. NEURONTIN [Concomitant]

REACTIONS (2)
  - DISEASE RECURRENCE [None]
  - OPTIC NEURITIS [None]
